FAERS Safety Report 5926679-0 (Version None)
Quarter: 2008Q4

REPORT INFORMATION
  Report Type: 
  Country: None (occurrence: None)
  Receive Date: 20081017
  Receipt Date: 20081009
  Transmission Date: 20090506
  Serious: Yes (Death)
  Sender: FDA-Public Use
  Company Number: 20390

PATIENT
  Age: 80 Year
  Sex: Female

DRUGS (2)
  1. FLUDARABINE PHOSPHATE [Suspect]
     Indication: CHRONIC LYMPHOCYTIC LEUKAEMIA
     Dosage: 33 MG IV
     Route: 042
     Dates: start: 19990401, end: 19990501
  2. CHLORAMBUCIL [Concomitant]

REACTIONS (2)
  - METASTATIC SQUAMOUS CELL CARCINOMA [None]
  - MUSCULOSKELETAL PAIN [None]
